FAERS Safety Report 9200812 (Version 2)
Quarter: 2013Q2

REPORT INFORMATION
  Report Type: Spontaneous
  Country: ES (occurrence: ES)
  Receive Date: 20130401
  Receipt Date: 20130522
  Transmission Date: 20140414
  Serious: Yes (Death, Other)
  Sender: FDA-Public Use
  Company Number: ES-RANBAXY-2013RR-66728

PATIENT
  Sex: Female

DRUGS (7)
  1. TRAMADOL [Suspect]
     Indication: BONE PAIN
     Dosage: UNK
     Route: 065
  2. FENTANYL [Suspect]
     Indication: BONE PAIN
     Dosage: UNK
     Route: 062
  3. BUPRENORPHINE [Suspect]
     Indication: BONE PAIN
     Dosage: UNK
     Route: 062
  4. MORPHINE [Suspect]
     Indication: BONE PAIN
     Dosage: UNK
     Route: 048
  5. MORPHINE [Suspect]
     Indication: BONE PAIN
     Dosage: 450 MG, QD
     Route: 051
  6. OXYCODONE [Suspect]
     Indication: BONE PAIN
     Dosage: UNK
     Route: 048
  7. OXYCODONE [Suspect]
     Indication: BONE PAIN
     Dosage: 320 MG, QD
     Route: 065

REACTIONS (4)
  - Constipation [Recovering/Resolving]
  - Gastrointestinal hypomotility [Recovering/Resolving]
  - Haemorrhoids [Recovered/Resolved]
  - Delirium [Recovering/Resolving]
